FAERS Safety Report 10889555 (Version 1)
Quarter: 2015Q1

REPORT INFORMATION
  Report Type: Spontaneous
  Country: US (occurrence: US)
  Receive Date: 20150305
  Receipt Date: 20150305
  Transmission Date: 20150721
  Serious: No
  Sender: FDA-Public Use
  Company Number: US-GLAXOSMITHKLINE-US2015GSK029685

PATIENT
  Sex: Female

DRUGS (2)
  1. VERAMYST [Suspect]
     Active Substance: FLUTICASONE FUROATE
     Indication: CHRONIC OBSTRUCTIVE PULMONARY DISEASE
  2. VERAMYST [Suspect]
     Active Substance: FLUTICASONE FUROATE
     Indication: MULTIPLE ALLERGIES

REACTIONS (1)
  - Sinus headache [Unknown]
